FAERS Safety Report 4511792-5 (Version None)
Quarter: 2004Q4

REPORT INFORMATION
  Report Type: 
  Country: None (occurrence: None)
  Receive Date: 20041129
  Receipt Date: 20041116
  Transmission Date: 20050328
  Serious: Yes (Other)
  Sender: FDA-Public Use
  Company Number: PHEH2004US12485

PATIENT
  Age: 3 Year
  Sex: Male

DRUGS (2)
  1. FORADIL [Suspect]
  2. PULMICORT [Suspect]

REACTIONS (4)
  - ABDOMINAL PAIN UPPER [None]
  - DRUG HYPERSENSITIVITY [None]
  - HYPERSENSITIVITY [None]
  - RESPIRATORY FAILURE [None]
